FAERS Safety Report 9735349 (Version 1)
Quarter: 2013Q4

REPORT INFORMATION
  Report Type: Spontaneous
  Country: US (occurrence: None)
  Receive Date: 20131205
  Receipt Date: 20131205
  Transmission Date: 20140711
  Serious: Yes (Other)
  Sender: FDA-Public Use
  Company Number: None

PATIENT
  Age: 63 Year
  Sex: Female
  Weight: 81.65 kg

DRUGS (1)
  1. CYMBALTA 30 MG LILLY [Suspect]
     Indication: DEPRESSION
     Dosage: 1 PILL, ONCE DAILY, TAKEN BY MOUTH

REACTIONS (10)
  - Weight increased [None]
  - Drug withdrawal syndrome [None]
  - Paraesthesia [None]
  - Disorientation [None]
  - Clumsiness [None]
  - Insomnia [None]
  - Memory impairment [None]
  - Hyperhidrosis [None]
  - Bone pain [None]
  - Drug dependence [None]
